FAERS Safety Report 5308477-4 (Version None)
Quarter: 2007Q2

REPORT INFORMATION
  Report Type: 
  Country: None (occurrence: None)
  Receive Date: 20070423
  Receipt Date: 20070417
  Transmission Date: 20071010
  Serious: Yes (Hospitalization)
  Sender: FDA-Public Use
  Company Number: 2007SP001428

PATIENT
  Age: 44 Year
  Sex: Male
  Weight: 103.8737 kg

DRUGS (2)
  1. PEG-INTRON [Suspect]
     Indication: HEPATITIS C
     Dates: end: 20061031
  2. RIBAVIRIN [Suspect]
     Indication: HEPATITIS C
     Dosage: PO
     Route: 048
     Dates: end: 20061031

REACTIONS (4)
  - ANXIETY [None]
  - CYSTITIS [None]
  - DRUG INEFFECTIVE [None]
  - INSOMNIA [None]
